FAERS Safety Report 9252060 (Version 2)
Quarter: 2013Q3

REPORT INFORMATION
  Report Type: Spontaneous
  Country: US (occurrence: US)
  Receive Date: 20130424
  Receipt Date: 20130723
  Transmission Date: 20140515
  Serious: Yes (Other)
  Sender: FDA-Public Use
  Company Number: US-VERTEX PHARMACEUTICALS INC.-2013-005260

PATIENT
  Age: 54 Year
  Sex: Female
  Weight: 73 kg

DRUGS (3)
  1. INCIVEK [Suspect]
     Indication: HEPATITIS C
     Dosage: 750 MG, TID
     Route: 048
     Dates: start: 20130403, end: 20130619
  2. RIBAVIRIN [Suspect]
     Indication: HEPATITIS C
     Dosage: 2 TABS AM, 3 TABS PM
     Dates: start: 20130403, end: 20130619
  3. PEGASYS [Suspect]
     Indication: HEPATITIS C
     Dosage: 180 ?G, QW
     Route: 058
     Dates: start: 20130403, end: 20130619

REACTIONS (13)
  - Convulsion [Unknown]
  - Dyspnoea [Unknown]
  - Delirium [Unknown]
  - Skin fissures [Not Recovered/Not Resolved]
  - Weight decreased [Unknown]
  - Neck mass [Not Recovered/Not Resolved]
  - Mass [Not Recovered/Not Resolved]
  - Drug dose omission [Unknown]
  - Eye swelling [Not Recovered/Not Resolved]
  - Proctalgia [Not Recovered/Not Resolved]
  - Anal pruritus [Not Recovered/Not Resolved]
  - Rash generalised [Not Recovered/Not Resolved]
  - Diarrhoea [Not Recovered/Not Resolved]
